FAERS Safety Report 4343638-2 (Version None)
Quarter: 2004Q2

REPORT INFORMATION
  Report Type: 
  Country: None (occurrence: None)
  Receive Date: 20040419
  Receipt Date: 20040406
  Transmission Date: 20050107
  Serious: Yes (Hospitalization, Disabling, Other)
  Sender: FDA-Public Use
  Company Number: 2003035058

PATIENT
  Age: 26 Year
  Sex: Male

DRUGS (5)
  1. ZITHROMAX [Suspect]
     Indication: PHARYNGOLARYNGEAL PAIN
     Dosage: DAILY, ORAL
     Route: 048
     Dates: start: 20000711, end: 20000701
  2. ZITHROMAX [Suspect]
     Indication: PYREXIA
     Dosage: DAILY, ORAL
     Route: 048
     Dates: start: 20000711, end: 20000701
  3. CARBAMAZEPINE [Suspect]
     Indication: AFFECTIVE DISORDER
     Dosage: 400 MG (BID), ORAL
     Route: 048
     Dates: start: 20000628, end: 20000909
  4. OLANZAPINE [Suspect]
     Indication: DEPRESSION
     Dosage: 5 MG (DAILY), ORAL
     Route: 048
     Dates: start: 20000628, end: 20000909
  5. VENLAFAXINE HCL [Concomitant]

REACTIONS (21)
  - ALBUMIN GLOBULIN RATIO DECREASED [None]
  - ANAEMIA [None]
  - ARTHRALGIA [None]
  - BRONCHITIS [None]
  - DRUG HYPERSENSITIVITY [None]
  - DRY SKIN [None]
  - EXCORIATION [None]
  - EYE PAIN [None]
  - HEADACHE [None]
  - HERPES SIMPLEX [None]
  - LEUKOCYTOCLASTIC VASCULITIS [None]
  - NEUTROPHIL COUNT DECREASED [None]
  - ONYCHOMADESIS [None]
  - PHOTOSENSITIVITY REACTION [None]
  - PROTEIN TOTAL DECREASED [None]
  - RESPIRATORY TRACT CONGESTION [None]
  - SKIN LESION [None]
  - SKIN ULCER [None]
  - STEVENS-JOHNSON SYNDROME [None]
  - TOXIC EPIDERMAL NECROLYSIS [None]
  - URTICARIA [None]
